FAERS Safety Report 18039825 (Version 1)
Quarter: 2020Q3

REPORT INFORMATION
  Report Type: Spontaneous
  Country: AT (occurrence: AT)
  Receive Date: 20200717
  Receipt Date: 20200717
  Transmission Date: 20201103
  Serious: Yes (Other)
  Sender: FDA-Public Use
  Company Number: AT-AMGEN-AUTSP2020112786

PATIENT
  Age: 42 Year
  Sex: Female

DRUGS (6)
  1. FULVESTRANT. [Suspect]
     Active Substance: FULVESTRANT
     Indication: BREAST CANCER
     Dosage: 500 MILLIGRAM
     Route: 065
     Dates: start: 201905
  2. GOSERELIN [Suspect]
     Active Substance: GOSERELIN
     Indication: BREAST CANCER
     Dosage: 3.6 MILLIGRAM
     Route: 065
     Dates: start: 201905
  3. EVEROLIMUS. [Suspect]
     Active Substance: EVEROLIMUS
     Dosage: 5 MILLIGRAM
     Route: 065
  4. XGEVA [Suspect]
     Active Substance: DENOSUMAB
     Indication: BREAST CANCER
     Dosage: 120 MILLIGRAM
     Route: 065
     Dates: start: 201905
  5. EVEROLIMUS. [Suspect]
     Active Substance: EVEROLIMUS
     Indication: BREAST CANCER
     Dosage: 10 MILLIGRAM
     Route: 065
     Dates: start: 201905
  6. EVEROLIMUS. [Suspect]
     Active Substance: EVEROLIMUS
     Dosage: 10 MILLIGRAM
     Route: 065

REACTIONS (6)
  - Spinal pain [Unknown]
  - Metastases to bone [Unknown]
  - Metastases to lymph nodes [Unknown]
  - Pneumonitis [Unknown]
  - Therapeutic product effect incomplete [Unknown]
  - Neutropenia [Unknown]

NARRATIVE: CASE EVENT DATE: 201907
